FAERS Safety Report 6442240-6 (Version None)
Quarter: 2009Q4

REPORT INFORMATION
  Report Type: 
  Country: None (occurrence: None)
  Receive Date: 20091112
  Receipt Date: 20091104
  Transmission Date: 20100525
  Serious: Yes (Other)
  Sender: FDA-Public Use
  Company Number: ADR50202009

PATIENT
  Age: 63 Year
  Sex: Female

DRUGS (5)
  1. CITALOPRAM (MFR: UNKNOWN) [Suspect]
     Indication: DEPRESSION
     Dosage: 20 MG AND 10 MG-1/2 DAYS, ORAL
     Route: 048
     Dates: start: 20010101, end: 20080801
  2. CITALOPRAM (MFR: UNKNOWN) [Suspect]
     Indication: DEPRESSION
     Dosage: 20 MG AND 10 MG-1/2 DAYS, ORAL
     Route: 048
     Dates: start: 20080801, end: 20091002
  3. ASPIRIN [Concomitant]
  4. BENDROFLUAZIDE [Concomitant]
  5. PREMARIN [Concomitant]

REACTIONS (8)
  - ANXIETY [None]
  - CHILLS [None]
  - DEPRESSED MOOD [None]
  - DIZZINESS [None]
  - DRUG WITHDRAWAL SYNDROME [None]
  - HEADACHE [None]
  - IRRITABILITY [None]
  - MYALGIA [None]
